FAERS Safety Report 22522152 (Version 1)
Quarter: 2023Q2

REPORT INFORMATION
  Report Type: Spontaneous
  Country: HU (occurrence: HU)
  Receive Date: 20230605
  Receipt Date: 20230605
  Transmission Date: 20230721
  Serious: Yes (Other)
  Sender: FDA-Public Use
  Company Number: HU-SA-2019SA295469

PATIENT
  Age: 65 Year
  Sex: Male

DRUGS (3)
  1. CYCLOPHOSPHAMIDE [Suspect]
     Active Substance: CYCLOPHOSPHAMIDE
     Indication: Chronic lymphocytic leukaemia stage 2
     Dosage: FULL DOSE, QCY, CYCLIC
     Route: 048
     Dates: start: 201303, end: 201307
  2. FLUDARABINE PHOSPHATE [Suspect]
     Active Substance: FLUDARABINE PHOSPHATE
     Indication: Chronic lymphocytic leukaemia stage 2
     Dosage: FULL DOSE, QCY, CYCLIC
     Route: 048
     Dates: start: 201303, end: 201307
  3. RITUXIMAB [Suspect]
     Active Substance: RITUXIMAB
     Indication: Chronic lymphocytic leukaemia stage 2
     Dosage: FULL DOSE, QCY, CYCLIC
     Route: 048
     Dates: start: 201303, end: 201307

REACTIONS (1)
  - Febrile neutropenia [Recovered/Resolved]
